FAERS Safety Report 5871421-5 (Version None)
Quarter: 2008Q3

REPORT INFORMATION
  Report Type: 
  Country: None (occurrence: None)
  Receive Date: 20080905
  Receipt Date: 20080320
  Transmission Date: 20090109
  Serious: No
  Sender: FDA-Public Use
  Company Number: A0704188A

PATIENT
  Age: 46 Year
  Sex: Male
  Weight: 152.3 kg

DRUGS (13)
  1. REQUIP [Suspect]
     Indication: DRUG USE FOR UNKNOWN INDICATION
     Dates: start: 20080111, end: 20080115
  2. HUMULIN R [Concomitant]
  3. LANTUS [Concomitant]
  4. GLIPIZIDE [Concomitant]
  5. ALLEGRA [Concomitant]
     Dosage: 60MG TWICE PER DAY
  6. PLAVIX [Concomitant]
     Dosage: 75MG PER DAY
  7. ZANTAC [Concomitant]
     Dosage: 150MG TWICE PER DAY
  8. ASPIRIN [Concomitant]
     Dosage: 81MG PER DAY
  9. OMEPRAZOLE [Concomitant]
     Dosage: 20MG TWICE PER DAY
  10. ZOCOR [Concomitant]
     Dosage: 80MG PER DAY
  11. COREG [Concomitant]
     Dosage: 25MG TWICE PER DAY
  12. ENALAPRIL MALEATE [Concomitant]
     Dosage: 2.5MG PER DAY
  13. LASIX [Concomitant]
     Dosage: 80MG PER DAY

REACTIONS (1)
  - BLOOD GLUCOSE INCREASED [None]
